FAERS Safety Report 13568526 (Version 4)
Quarter: 2017Q3

REPORT INFORMATION
  Report Type: Spontaneous
  Country: KR (occurrence: KR)
  Receive Date: 20170522
  Receipt Date: 20170825
  Transmission Date: 20171127
  Serious: Yes (Hospitalization, Other)
  Sender: FDA-Public Use
  Company Number: KR-009507513-1612KOR001409

PATIENT
  Age: 66 Year
  Sex: Male
  Weight: 60.2 kg

DRUGS (14)
  1. ATENOLOL. [Concomitant]
     Active Substance: ATENOLOL
     Indication: DIABETES MELLITUS
     Dosage: 50 MG (1 TABLET), QD
     Route: 048
     Dates: start: 2011
  2. TRESIBA [Concomitant]
     Active Substance: INSULIN DEGLUDEC
     Indication: DIABETES MELLITUS
     Dosage: STRENGTH: 100 U/ML; 20 IU, QD
     Route: 058
  3. JANUMET XR EXTENDED RELEASE TABLET 50/500 MG [Concomitant]
     Indication: DIABETES MELLITUS
     Dosage: 1 TABLET, BID
     Route: 048
     Dates: start: 2011
  4. EMEND (FOSAPREPITANT DIMEGLUMINE) [Suspect]
     Active Substance: FOSAPREPITANT DIMEGLUMINE
     Dosage: 150 MG, ONCE
     Route: 042
     Dates: start: 20161010, end: 20161010
  5. CILOSTAZOL. [Concomitant]
     Active Substance: CILOSTAZOL
     Indication: DIABETES MELLITUS
     Dosage: 1 TABLET, QD
     Route: 048
     Dates: start: 2011
  6. CENTRUM SILVER ADVANCE (MINERALS (UNSPECIFIED) (+) VITAMINS (UNSPECIFI [Concomitant]
     Indication: NUTRITIONAL SUPPLEMENTATION
     Dosage: 1 DF, QD
     Route: 048
     Dates: start: 20160607
  7. EMEND (FOSAPREPITANT DIMEGLUMINE) [Suspect]
     Active Substance: FOSAPREPITANT DIMEGLUMINE
     Indication: PROPHYLAXIS OF NAUSEA AND VOMITING
     Dosage: 150 MG, ONCE
     Route: 042
     Dates: start: 20160727, end: 20160727
  8. SANCUSO [Concomitant]
     Active Substance: GRANISETRON
     Indication: PROPHYLAXIS OF NAUSEA AND VOMITING
     Dosage: 1 EA, QD; STRENGTH: 80.2X66.6 MM2
     Route: 062
     Dates: start: 20160816, end: 20160822
  9. AMARYL [Concomitant]
     Active Substance: GLIMEPIRIDE
     Indication: DIABETES MELLITUS
     Dosage: 2 MG, BID
     Route: 048
     Dates: start: 2011
  10. EMEND (FOSAPREPITANT DIMEGLUMINE) [Suspect]
     Active Substance: FOSAPREPITANT DIMEGLUMINE
     Dosage: 150 MG, ONCE
     Route: 042
     Dates: start: 20160817, end: 20160817
  11. SANCUSO [Concomitant]
     Active Substance: GRANISETRON
     Dosage: 1 EA, QD; STRENGTH: 80.2X66.6 MM2
     Route: 062
     Dates: start: 20161009, end: 20161015
  12. DIABEX [Concomitant]
     Active Substance: METFORMIN HYDROCHLORIDE
     Indication: DIABETES MELLITUS
     Dosage: 1 TABLET, BID
     Route: 048
     Dates: start: 2011
  13. PANCRON (DIMETHICONE (+) HEMICELLULASE (+) OX BILE EXTRACT (+) PANCREA [Concomitant]
     Indication: PROPHYLAXIS
     Dosage: 1 TABLET, TID
     Dates: start: 20160816
  14. SANCUSO [Concomitant]
     Active Substance: GRANISETRON
     Dosage: 1 EA, QD; STRENGTH: 80.2X66.6 MM2
     Route: 062
     Dates: start: 20160726, end: 20160801

REACTIONS (7)
  - Productive cough [Recovered/Resolved]
  - Neutropenia [Recovered/Resolved]
  - Ascites [Recovered/Resolved]
  - Diarrhoea [Recovered/Resolved]
  - Febrile neutropenia [Recovered/Resolved]
  - Urinary tract infection [Recovered/Resolved]
  - Cough [Recovered/Resolved]

NARRATIVE: CASE EVENT DATE: 20160816
